FAERS Safety Report 24143014 (Version 1)
Quarter: 2024Q3

REPORT INFORMATION
  Report Type: Spontaneous
  Country: US (occurrence: US)
  Receive Date: 20240726
  Receipt Date: 20240726
  Transmission Date: 20241017
  Serious: No
  Sender: JUBILANT
  Company Number: US-JUBILANT CADISTA PHARMACEUTICALS INC.-2024JUB00035

PATIENT
  Sex: Female

DRUGS (2)
  1. PREDNISONE [Suspect]
     Active Substance: PREDNISONE
     Dosage: 20 MG
  2. PREDNISONE [Suspect]
     Active Substance: PREDNISONE
     Dosage: 3 MG, 1X/DAY

REACTIONS (1)
  - Intraocular pressure increased [Not Recovered/Not Resolved]
